FAERS Safety Report 6018780-0 (Version None)
Quarter: 2008Q4

REPORT INFORMATION
  Report Type: 
  Country: None (occurrence: None)
  Receive Date: 20081222
  Receipt Date: 20081210
  Transmission Date: 20090506
  Serious: Yes (Hospitalization)
  Sender: FDA-Public Use
  Company Number: 232868K08USA

PATIENT
  Age: 56 Year
  Sex: Male
  Weight: 67 kg

DRUGS (8)
  1. REBIF [Suspect]
     Indication: MULTIPLE SCLEROSIS
     Dosage: 44 MCG, 3 IN 1 WEEKS, SUBCUTANEOUS
     Route: 058
     Dates: start: 20041115
  2. NORVASC [Suspect]
     Indication: HYPERTENSION
     Dosage: 10 MG, 1 IN 1 DAYS,; 5 MG, 1 IN 1 DAYS,
     Dates: end: 20081101
  3. NORVASC [Suspect]
     Indication: HYPERTENSION
     Dosage: 10 MG, 1 IN 1 DAYS,; 5 MG, 1 IN 1 DAYS,
     Dates: start: 20080101
  4. BACLOFEN [Concomitant]
  5. LOMOTIL [Concomitant]
  6. TRICOR [Concomitant]
  7. ZANAFLEX [Concomitant]
  8. MULTI-VITAMINS [Concomitant]

REACTIONS (2)
  - BLOOD PRESSURE DECREASED [None]
  - SYNCOPE [None]
